FAERS Safety Report 6214598-4 (Version None)
Quarter: 2009Q2

REPORT INFORMATION
  Report Type: 
  Country: None (occurrence: None)
  Receive Date: 20090604
  Receipt Date: 20090519
  Transmission Date: 20091009
  Serious: Yes (Other)
  Sender: FDA-Public Use
  Company Number: AU-PFIZER INC-2009214878

PATIENT

DRUGS (5)
  1. CHAMPIX [Suspect]
     Dosage: 1 MG, 2X/DAY
  2. SOMAC [Concomitant]
  3. INSULIN [Concomitant]
     Indication: TYPE 1 DIABETES MELLITUS
  4. PERINDOPRIL ERBUMINE [Concomitant]
     Dosage: 2.5 MG, UNK
     Dates: start: 20090301
  5. PRAVACHOL [Concomitant]
     Indication: BLOOD CHOLESTEROL

REACTIONS (2)
  - BLOOD GLUCOSE INCREASED [None]
  - HEADACHE [None]
